FAERS Safety Report 13371701 (Version 4)
Quarter: 2017Q2

REPORT INFORMATION
  Report Type: Report from Study
  Country: JP (occurrence: JP)
  Receive Date: 20170325
  Receipt Date: 20170421
  Transmission Date: 20170830
  Serious: Yes (Death, Other)
  Sender: FDA-Public Use
  Company Number: JP-AMGEN-JPNCT2016185796

PATIENT
  Age: 72 Year
  Sex: Male
  Weight: 56 kg

DRUGS (18)
  1. PANITUMUMAB [Suspect]
     Active Substance: PANITUMUMAB
     Indication: RECTAL CANCER
     Dosage: 360 MG, Q2WK
     Route: 041
     Dates: start: 20161102, end: 20161102
  2. OXALIPLATIN. [Suspect]
     Active Substance: OXALIPLATIN
     Dosage: 100 MG, Q2WEEKS
     Route: 041
     Dates: start: 20170124, end: 20170307
  3. CALCIUM LEVOFOLINATE [Suspect]
     Active Substance: LEVOLEUCOVORIN CALCIUM
     Indication: RECTAL CANCER
     Dosage: 325 MG, Q2WEEKS
     Route: 041
     Dates: start: 20161102, end: 20170307
  4. FLUOROURACIL. [Suspect]
     Active Substance: FLUOROURACIL
     Indication: RECTAL CANCER
     Dosage: 650 MG, Q2WEEKS
     Route: 040
     Dates: start: 20161102, end: 20161213
  5. PANITUMUMAB [Suspect]
     Active Substance: PANITUMUMAB
     Dosage: 4.8 MG/KG, Q2WK
     Route: 041
     Dates: start: 20161213, end: 20161227
  6. PANITUMUMAB [Suspect]
     Active Substance: PANITUMUMAB
     Dosage: 4.8 MG/KG, Q2WK
     Route: 041
     Dates: start: 20170221
  7. GRANDAXIN [Concomitant]
     Active Substance: TOFISOPAM
     Indication: DIZZINESS
     Dosage: 0.27 G, TID
     Route: 048
     Dates: start: 201611, end: 20170311
  8. PANITUMUMAB [Suspect]
     Active Substance: PANITUMUMAB
     Dosage: 360 MG, Q2WK
     Route: 041
     Dates: start: 20161129, end: 20161129
  9. OXALIPLATIN. [Suspect]
     Active Substance: OXALIPLATIN
     Indication: RECTAL CANCER
     Dosage: 130 MG, Q2WEEKS
     Route: 041
     Dates: start: 20161102, end: 20170110
  10. FLUOROURACIL. [Suspect]
     Active Substance: FLUOROURACIL
     Dosage: 650 MG, Q2WEEKS
     Route: 040
     Dates: start: 20170110, end: 20170307
  11. MERISLON [Concomitant]
     Active Substance: BETAHISTINE MESILATE
     Indication: DIZZINESS
     Dosage: 12 MG, TID
     Route: 048
     Dates: start: 201611, end: 20170311
  12. CRAVIT [Concomitant]
     Active Substance: LEVOFLOXACIN
     Indication: PYREXIA
     Dosage: 500 MG, QD
     Route: 048
     Dates: start: 20170221, end: 20170225
  13. FLUOROURACIL. [Suspect]
     Active Substance: FLUOROURACIL
     Dosage: 3250 MG, Q2WEEKS
     Route: 041
     Dates: start: 20170124, end: 20170307
  14. AMLODIPINE [Concomitant]
     Active Substance: AMLODIPINE BESYLATE
     Indication: HYPERTENSION
     Dosage: 2.5 MG, QD
     Route: 048
     Dates: start: 2014, end: 20170311
  15. RIVOTRIL [Concomitant]
     Active Substance: CLONAZEPAM
     Indication: DIZZINESS
     Dosage: 0.2 G, TID
     Route: 048
     Dates: start: 201611, end: 20170311
  16. FLUOROURACIL. [Suspect]
     Active Substance: FLUOROURACIL
     Dosage: 3900 MG, Q2WEEKS
     Route: 041
     Dates: start: 20161102, end: 20170110
  17. AZUNOL [Concomitant]
     Active Substance: SODIUM GUALENATE
     Indication: INFECTION PROPHYLAXIS
     Dosage: UNK
     Route: 049
     Dates: start: 20161102
  18. CALONAL [Concomitant]
     Active Substance: ACETAMINOPHEN
     Indication: PYREXIA
     Dosage: 500 MG, UNK
     Route: 048
     Dates: start: 20170221, end: 20170311

REACTIONS (11)
  - Delirium [Not Recovered/Not Resolved]
  - Diarrhoea [Unknown]
  - Peripheral sensory neuropathy [Not Recovered/Not Resolved]
  - Paronychia [Unknown]
  - Diabetes mellitus [Not Recovered/Not Resolved]
  - Dry skin [Unknown]
  - Decreased appetite [Unknown]
  - Dermatitis acneiform [Unknown]
  - Pneumonitis [Fatal]
  - Constipation [Unknown]
  - Hypersensitivity [Unknown]

NARRATIVE: CASE EVENT DATE: 20170307
